FAERS Safety Report 8418962-4 (Version None)
Quarter: 2012Q2

REPORT INFORMATION
  Report Type: 
  Country: None (occurrence: None)
  Receive Date: 20120607
  Receipt Date: 20120531
  Transmission Date: 20120825
  Serious: Yes (Hospitalization, Other)
  Sender: FDA-Public Use
  Company Number: PHHY2008JP11855

PATIENT
  Sex: Female
  Weight: 13 kg

DRUGS (18)
  1. PROGRAF [Suspect]
     Dosage: 4.5 MG, UNK
     Route: 048
     Dates: start: 20060123, end: 20060216
  2. CERTICAN [Suspect]
     Dosage: 1 MG, UNK
     Route: 048
     Dates: start: 20060130, end: 20060203
  3. CERTICAN [Suspect]
     Dosage: 0.75 MG, UNK
     Route: 048
     Dates: start: 20060203, end: 20060424
  4. EVEROLIMUS [Concomitant]
  5. CERTICAN [Suspect]
     Indication: HEART TRANSPLANT
     Dosage: 0.5 MG, UNK
     Route: 048
     Dates: start: 20060123, end: 20060130
  6. NEORAL [Suspect]
     Indication: HEART TRANSPLANT
  7. CELLCEPT [Suspect]
     Indication: HEART TRANSPLANT
     Route: 048
     Dates: start: 20090201
  8. CERTICAN [Suspect]
     Dosage: 1 MG, DAILY
     Route: 048
     Dates: start: 20080123, end: 20090122
  9. AZATHIOPRINE [Suspect]
     Indication: HEART TRANSPLANT
     Route: 048
  10. TACROLIMUS [Suspect]
     Indication: HEART TRANSPLANT
  11. PROGRAF [Suspect]
     Indication: HEART TRANSPLANT
     Dosage: 4.8 MG, UNK
     Route: 048
     Dates: end: 20060123
  12. PROGRAF [Suspect]
     Dosage: 4.0 MG, UNK
     Route: 048
     Dates: start: 20060320, end: 20060424
  13. TENORMIN [Concomitant]
     Dosage: 12 MG, UNK
     Route: 048
  14. SIROLIMUS [Concomitant]
  15. CERTICAN [Suspect]
     Dosage: UNK
     Route: 048
     Dates: end: 20090205
  16. CERTICAN [Suspect]
     Dosage: UNK
  17. PROGRAF [Suspect]
     Dosage: 3.0 MG, UNK
     Route: 048
     Dates: start: 20060216, end: 20060320
  18. FAMOTIDINE [Concomitant]
     Dosage: 12 MG, UNK
     Route: 048

REACTIONS (10)
  - NASOPHARYNGITIS [None]
  - PYREXIA [None]
  - INTERSTITIAL LUNG DISEASE [None]
  - COUGH [None]
  - NAUSEA [None]
  - RESPIRATORY SYNCYTIAL VIRUS INFECTION [None]
  - HEART TRANSPLANT REJECTION [None]
  - RENAL IMPAIRMENT [None]
  - RASH ERYTHEMATOUS [None]
  - DIARRHOEA [None]
